FAERS Safety Report 9539190 (Version 1)
Quarter: 2013Q2

REPORT INFORMATION
  Report Type: Spontaneous
  Country: US (occurrence: None)
  Receive Date: 20130521
  Receipt Date: 20130521
  Transmission Date: 20140414
  Serious: No
  Sender: FDA-Public Use
  Company Number: 1000043161

PATIENT
  Age: 53 Year
  Sex: Male

DRUGS (6)
  1. TUDORZA PRESSAIR (ACLIDINIUM BROMIDE) (400 MICROGRAM, POWDER) [Suspect]
     Indication: CHRONIC OBSTRUCTIVE PULMONARY DISEASE
     Dosage: (400 MCG, 2 IN 1 D) RESPIRATORY
     Route: 055
     Dates: start: 20130103, end: 20130105
  2. BUSPAR [Concomitant]
  3. SYMBICORT [Concomitant]
  4. ALBUTEROL [Concomitant]
  5. ZOLOFT [Concomitant]
  6. NASONEX [Concomitant]

REACTIONS (1)
  - Rash [None]
